FAERS Safety Report 4764891-7 (Version None)
Quarter: 2005Q3

REPORT INFORMATION
  Report Type: 
  Country: None (occurrence: None)
  Receive Date: 20050906
  Receipt Date: 20050823
  Transmission Date: 20060218
  Serious: Yes (Hospitalization, Other)
  Sender: FDA-Public Use
  Company Number: US_0503114452

PATIENT
  Age: 52 Year
  Sex: Female
  Weight: 125 kg

DRUGS (8)
  1. ZYPREXA [Suspect]
     Indication: BIPOLAR DISORDER
     Dosage: 10 MG DAY
     Dates: start: 20021015, end: 20030101
  2. PROZAC [Concomitant]
  3. VICODIN [Concomitant]
  4. DARVOCET [Concomitant]
  5. VIOXX [Concomitant]
  6. LORCET-HD [Concomitant]
  7. IBUPROFEN [Concomitant]
  8. COMBIVENT [Concomitant]

REACTIONS (12)
  - ANAEMIA [None]
  - ASCITES [None]
  - CALCINOSIS [None]
  - CHOLECYSTITIS ACUTE [None]
  - CONDITION AGGRAVATED [None]
  - DIABETES MELLITUS NON-INSULIN-DEPENDENT [None]
  - DIABETIC NEUROPATHY [None]
  - DUODENAL OBSTRUCTION [None]
  - PANCREATIC PSEUDOCYST [None]
  - PANCREATITIS [None]
  - POST PROCEDURAL BILE LEAK [None]
  - PROCEDURAL COMPLICATION [None]
